FAERS Safety Report 6826257-5 (Version None)
Quarter: 2010Q3

REPORT INFORMATION
  Report Type: 
  Country: None (occurrence: None)
  Receive Date: 20100709
  Receipt Date: 20100628
  Transmission Date: 20110219
  Serious: Yes (Other)
  Sender: FDA-Public Use
  Company Number: PHHY2010US42653

PATIENT
  Age: 48 Year
  Sex: Male
  Weight: 72 kg

DRUGS (10)
  1. CLOZAPINE [Suspect]
     Dosage: 700 MG, QD (200 MG EVERY MORNING AND 500 MG EVERY EVENING)
     Route: 048
  2. BENZTROPINE MESYLATE [Concomitant]
  3. OMEPRAZOLE [Concomitant]
  4. MIDAZOLAM HCL [Concomitant]
     Dosage: 2 MG, UNK
  5. PROPOFOL [Concomitant]
     Dosage: 200 MG, UNK
  6. LIDOCAINE [Concomitant]
     Dosage: 50 MG, UNK
  7. FENTANYL [Concomitant]
     Dosage: 100 UG, UNK
  8. SUCCINYLCHOLINE CHLORIDE [Concomitant]
  9. SEVOFLURANE [Concomitant]
     Dosage: 1.2%-1.5%
  10. VECURONIUM BROMIDE [Concomitant]

REACTIONS (4)
  - ANAPHYLACTIC REACTION [None]
  - HYPOTENSION [None]
  - MEAN ARTERIAL PRESSURE DECREASED [None]
  - PULMONARY MASS [None]
